FAERS Safety Report 6373120-2 (Version None)
Quarter: 2009Q3

REPORT INFORMATION
  Report Type: 
  Country: None (occurrence: None)
  Receive Date: 20090924
  Receipt Date: 20090611
  Transmission Date: 20100115
  Serious: No
  Sender: FDA-Public Use
  Company Number: US-ASTRAZENECA-2009UW03068

PATIENT
  Age: 18218 Day
  Sex: Female
  Weight: 72.1 kg

DRUGS (3)
  1. SEROQUEL [Suspect]
     Indication: BIPOLAR I DISORDER
     Route: 048
     Dates: start: 19990101, end: 20060101
  2. GEODON [Concomitant]
  3. ZYPREXA [Concomitant]

REACTIONS (2)
  - FALL [None]
  - TYPE 2 DIABETES MELLITUS [None]
